FAERS Safety Report 20456353 (Version 1)
Quarter: 2022Q1

REPORT INFORMATION
  Report Type: Spontaneous
  Country: CN (occurrence: CN)
  Receive Date: 20220210
  Receipt Date: 20220210
  Transmission Date: 20220423
  Serious: Yes (Other)
  Sender: FDA-Public Use
  Company Number: CN-UCBSA-2022005695

PATIENT
  Age: 3 Year
  Sex: Male

DRUGS (9)
  1. KEPPRA [Suspect]
     Active Substance: LEVETIRACETAM
     Indication: Seizure
     Dosage: UNK
  2. CEFODIZIME SODIUM [Concomitant]
     Active Substance: CEFODIZIME SODIUM
     Indication: Infection
  3. MEROPENEM [Concomitant]
     Active Substance: MEROPENEM
     Indication: Infection
  4. SULFAMETHOXAZOLE [Concomitant]
     Active Substance: SULFAMETHOXAZOLE
     Indication: Infection
  5. ACYCLOVIR [Concomitant]
     Active Substance: ACYCLOVIR
     Indication: Infection
  6. VORICONAZOLE [Concomitant]
     Active Substance: VORICONAZOLE
     Indication: Infection
  7. TOPIRAMATE [Concomitant]
     Active Substance: TOPIRAMATE
     Indication: Seizure
  8. PHENYTOIN SODIUM [Concomitant]
     Active Substance: PHENYTOIN SODIUM
     Indication: Seizure
  9. CLONAZEPAM [Concomitant]
     Active Substance: CLONAZEPAM
     Indication: Seizure

REACTIONS (1)
  - Generalised tonic-clonic seizure [Recovered/Resolved]
